FAERS Safety Report 19820711 (Version 3)
Quarter: 2021Q4

REPORT INFORMATION
  Report Type: Report from Study
  Country: US (occurrence: US)
  Receive Date: 20210913
  Receipt Date: 20211225
  Transmission Date: 20220303
  Serious: Yes (Other)
  Sender: FDA-Public Use
  Company Number: NVSC2021US203353

PATIENT
  Sex: Male

DRUGS (2)
  1. ENTRESTO [Suspect]
     Active Substance: SACUBITRIL\VALSARTAN
     Indication: Cardiac failure chronic
     Dosage: 200 MG (97/103 MG), BID
     Route: 065
  2. SPIRONOLACTONE [Suspect]
     Active Substance: SPIRONOLACTONE
     Indication: Product used for unknown indication
     Dosage: UNK
     Route: 065

REACTIONS (13)
  - Chest pain [Unknown]
  - General physical health deterioration [Unknown]
  - Blood potassium increased [Unknown]
  - Illness [Unknown]
  - Fluid retention [Unknown]
  - Feeling hot [Recovered/Resolved]
  - Hot flush [Recovered/Resolved]
  - Erythema [Unknown]
  - Weight increased [Unknown]
  - Agitation [Recovered/Resolved]
  - Fatigue [Recovered/Resolved]
  - Wrong technique in product usage process [Unknown]
  - Drug ineffective [Unknown]
